FAERS Safety Report 21394296 (Version 1)
Quarter: 2022Q3

REPORT INFORMATION
  Report Type: Spontaneous
  Country: HR (occurrence: HR)
  Receive Date: 20220930
  Receipt Date: 20220930
  Transmission Date: 20221027
  Serious: Yes (Other)
  Sender: FDA-Public Use
  Company Number: None

PATIENT
  Age: 43 Year
  Sex: Female

DRUGS (2)
  1. DULOXETINE [Suspect]
     Active Substance: DULOXETINE
     Indication: Product used for unknown indication
     Dosage: 1200 MG, FREQUENCY TIME : 1 DAYS, DURATION : 1 DAYS
     Dates: start: 20220731, end: 20220731
  2. ALPRAZOLAM [Suspect]
     Active Substance: ALPRAZOLAM
     Indication: Product used for unknown indication
     Dosage: 30 DOSAGE FORMS, TABLET, FREQUENCY TIME : 1 DAYS, DURATION : 1 DAYS
     Dates: start: 20220731, end: 20220731

REACTIONS (6)
  - Sopor [Unknown]
  - Somnolence [Unknown]
  - Loss of consciousness [Recovered/Resolved]
  - Crying [Unknown]
  - Suicide attempt [Unknown]
  - Intentional overdose [Unknown]

NARRATIVE: CASE EVENT DATE: 20220731
